FAERS Safety Report 11704817 (Version 1)
Quarter: 2015Q4

REPORT INFORMATION
  Report Type: Spontaneous
  Country: US (occurrence: US)
  Receive Date: 20151106
  Receipt Date: 20151106
  Transmission Date: 20160304
  Serious: Yes (Other)
  Sender: FDA-Public Use
  Company Number: US-PURDUE PHARMA-USA-2015-0126072

PATIENT
  Sex: Female

DRUGS (1)
  1. PERI-COLACE [Suspect]
     Active Substance: CASANTHRANOL\DOCUSATE SODIUM
     Indication: CONSTIPATION
     Dosage: 4 TABLET, SINGLE
     Route: 048
     Dates: start: 20150906

REACTIONS (2)
  - Intestinal obstruction [Unknown]
  - Vomiting [Unknown]
